FAERS Safety Report 16856256 (Version 6)
Quarter: 2021Q1

REPORT INFORMATION
  Report Type: Spontaneous
  Country: US (occurrence: US)
  Receive Date: 20190926
  Receipt Date: 20210105
  Transmission Date: 20210419
  Serious: No
  Sender: FDA-Public Use
  Company Number: US-PFIZER INC-2019146840

PATIENT
  Age: 61 Year
  Sex: Female

DRUGS (2)
  1. DETROL LA [Suspect]
     Active Substance: TOLTERODINE TARTRATE
     Dosage: 4 MG, 2X/DAY (1 CAPSULE TWICE A DAY)
  2. DETROL LA [Suspect]
     Active Substance: TOLTERODINE TARTRATE
     Indication: PAIN
     Dosage: 4 MG, 2X/DAY (1 CAPSULE TWICE A DAY 90 DAYS)
     Route: 048

REACTIONS (4)
  - Nasopharyngitis [Unknown]
  - Off label use [Unknown]
  - Chest pain [Unknown]
  - Hypoacusis [Unknown]
